FAERS Safety Report 10259454 (Version 1)
Quarter: 2014Q2

REPORT INFORMATION
  Report Type: Spontaneous
  Country: US (occurrence: US)
  Receive Date: 20140625
  Receipt Date: 20140625
  Transmission Date: 20141212
  Serious: No
  Sender: FDA-Public Use
  Company Number: US-ASTELLAS-2014US005716

PATIENT
  Age: 76 Year
  Sex: Male

DRUGS (1)
  1. VESICARE [Suspect]
     Indication: PRODUCT USED FOR UNKNOWN INDICATION
     Route: 065
     Dates: start: 20140519

REACTIONS (4)
  - Somnolence [Unknown]
  - Dry mouth [Unknown]
  - Pain in extremity [Unknown]
  - Drug dose omission [Unknown]
